FAERS Safety Report 17670878 (Version 1)
Quarter: 2020Q2

REPORT INFORMATION
  Report Type: Spontaneous
  Country: US (occurrence: US)
  Receive Date: 20200415
  Receipt Date: 20200415
  Transmission Date: 20200713
  Serious: No
  Sender: FDA-Public Use
  Company Number: None

PATIENT
  Age: 35 Year
  Sex: Female

DRUGS (5)
  1. FOLIC ACID. [Concomitant]
     Active Substance: FOLIC ACID
  2. HUMIRA [Suspect]
     Active Substance: ADALIMUMAB
     Indication: RHEUMATOID ARTHRITIS
     Dosage: ?          OTHER FREQUENCY:EVERY 14 DAYS;OTHER ROUTE:INJECTION?
     Dates: start: 20190821
  3. FOSAMAX [Concomitant]
     Active Substance: ALENDRONATE SODIUM
  4. LEUCOVOR [Concomitant]
  5. METHOTREXATE. [Concomitant]
     Active Substance: METHOTREXATE

REACTIONS (4)
  - Pregnancy [None]
  - Therapy interrupted [None]
  - Delivery [None]
  - Exposure during pregnancy [None]

NARRATIVE: CASE EVENT DATE: 20200414
